FAERS Safety Report 10067608 (Version 1)
Quarter: 2014Q2

REPORT INFORMATION
  Report Type: Spontaneous
  Country: DE (occurrence: DE)
  Receive Date: 20140409
  Receipt Date: 20140409
  Transmission Date: 20141212
  Serious: Yes (Life-Threatening)
  Sender: FDA-Public Use
  Company Number: DE-PERRIGO-14DE003486

PATIENT
  Sex: 0

DRUGS (2)
  1. MIDAZOLAM HCL RX 2 MG/ML 7H8 [Suspect]
     Indication: SEDATIVE THERAPY
     Dosage: INITIAL DOSE 0.03 MG/KG, REPEATED DOSES AS NEEDED
     Route: 048
  2. PIRITRAMIDE [Concomitant]
     Indication: ANALGESIC THERAPY
     Dosage: REPEATED DOSES OF 1 TO 2 MG AS NEEDED
     Route: 065

REACTIONS (1)
  - Ventricular fibrillation [Recovered/Resolved]
